FAERS Safety Report 22122293 (Version 1)
Quarter: 2023Q1

REPORT INFORMATION
  Report Type: Spontaneous
  Country: US (occurrence: US)
  Receive Date: 20230321
  Receipt Date: 20230321
  Transmission Date: 20230417
  Serious: No
  Sender: FDA-Public Use
  Company Number: US-SA-SAC20230321000269

PATIENT
  Age: 52 Year
  Sex: Female

DRUGS (18)
  1. DUPIXENT [Suspect]
     Active Substance: DUPILUMAB
     Indication: Asthma
     Dosage: 300MG; QOW
     Route: 058
  2. AJOVY [Concomitant]
     Active Substance: FREMANEZUMAB-VFRM
  3. ALBUTEROL SULFATE [Concomitant]
     Active Substance: ALBUTEROL SULFATE
  4. BENADRYL [Concomitant]
     Active Substance: DIPHENHYDRAMINE HYDROCHLORIDE
  5. BREO ELLIPTA [Concomitant]
     Active Substance: FLUTICASONE FUROATE\VILANTEROL TRIFENATATE
  6. CALCIUM [Concomitant]
     Active Substance: CALCIUM
  7. CARAFATE [Concomitant]
     Active Substance: SUCRALFATE
  8. CLOBETASOL [Concomitant]
     Active Substance: CLOBETASOL
  9. XANAX [Concomitant]
     Active Substance: ALPRAZOLAM
  10. XYZAL ALLERGY 24HR [Concomitant]
     Active Substance: LEVOCETIRIZINE DIHYDROCHLORIDE
  11. ARIPIPRAZOLE [Concomitant]
     Active Substance: ARIPIPRAZOLE
  12. TORSEMIDE [Concomitant]
     Active Substance: TORSEMIDE
  13. AMMONIUM LACTATE [Concomitant]
     Active Substance: AMMONIUM LACTATE
  14. B-50 COMPLEX [VITAMIN B COMPLEX] [Concomitant]
  15. BETAMETHASONE [Concomitant]
     Active Substance: BETAMETHASONE
  16. CLOBETASOL [Concomitant]
     Active Substance: CLOBETASOL
  17. SPIRONOLACTONE [Concomitant]
     Active Substance: SPIRONOLACTONE
  18. PREDNISONE [Concomitant]
     Active Substance: PREDNISONE
     Dosage: 5 DAY COURSE
     Route: 048
     Dates: start: 202302

REACTIONS (3)
  - Electric shock sensation [Not Recovered/Not Resolved]
  - Cough [Not Recovered/Not Resolved]
  - Nasopharyngitis [Not Recovered/Not Resolved]

NARRATIVE: CASE EVENT DATE: 20230316
